FAERS Safety Report 8777540 (Version 1)
Quarter: 2012Q4

REPORT INFORMATION
  Report Type: 
  Country: KR (occurrence: KR)
  Receive Date: 20120907
  Receipt Date: 20120907
  Transmission Date: 20130627
  Serious: Yes (Hospitalization)
  Sender: FDA-Public Use
  Company Number: KR-ELI_LILLY_AND_COMPANY-KR201206002231

PATIENT
  Age: 89 Year
  Sex: Female

DRUGS (2)
  1. HUMALOG 50% LISPRO, 50% NPL [Suspect]
     Indication: TYPE 2 DIABETES MELLITUS
     Dosage: 10 IU, tid
     Route: 058
     Dates: start: 20120425
  2. LEVEMIR [Concomitant]
     Dosage: UNK
     Dates: start: 201203, end: 20120425

REACTIONS (4)
  - Lumbar vertebral fracture [Not Recovered/Not Resolved]
  - Hypoglycaemia [Not Recovered/Not Resolved]
  - Pruritus [Recovered/Resolved]
  - Pain [Unknown]
